FAERS Safety Report 9640467 (Version 1)
Quarter: 2013Q4

REPORT INFORMATION
  Report Type: Report from Study
  Country: US (occurrence: US)
  Receive Date: 20131023
  Receipt Date: 20131023
  Transmission Date: 20140711
  Serious: No
  Sender: FDA-Public Use
  Company Number: US-ABBVIE-13P-163-1055353-00

PATIENT
  Sex: Female
  Weight: 95.34 kg

DRUGS (6)
  1. LUPRON DEPOT [Suspect]
     Indication: ENDOMETRIOSIS
     Route: 030
  2. PROPANOLOL [Concomitant]
     Indication: MIGRAINE
     Dosage: PROPHYLACTICALLY
     Route: 048
  3. AMITRIPTYLINE [Concomitant]
     Indication: MIGRAINE
     Dosage: DAILY, PROHYLACTICALLY
  4. ZYRTEC [Concomitant]
     Indication: HYPERSENSITIVITY
  5. PHENERGAN [Concomitant]
     Indication: NAUSEA
  6. METFORMIN ER [Concomitant]
     Indication: POLYCYSTIC OVARIES
     Route: 048

REACTIONS (6)
  - Feeling abnormal [Unknown]
  - Feeling abnormal [Unknown]
  - Tooth abscess [Unknown]
  - Tooth disorder [Unknown]
  - Anxiety [Unknown]
  - Migraine [Unknown]
